FAERS Safety Report 15367959 (Version 1)
Quarter: 2018Q3

REPORT INFORMATION
  Report Type: Spontaneous
  Country: US (occurrence: US)
  Receive Date: 20180904
  Receipt Date: 20180904
  Transmission Date: 20181010
  Serious: Yes (Death)
  Sender: FDA-Public Use
  Company Number: None

PATIENT
  Age: 24 Year
  Sex: Female

DRUGS (17)
  1. AQUADEKS [Concomitant]
     Active Substance: MINERALS\VITAMINS
  2. MIRTAZAPINE. [Concomitant]
     Active Substance: MIRTAZAPINE
     Dates: start: 20161001, end: 20180801
  3. ALBUTEROL. [Suspect]
     Active Substance: ALBUTEROL
     Indication: CYSTIC FIBROSIS
     Route: 055
     Dates: start: 20150301, end: 20180801
  4. ESCITALAPRAM [Concomitant]
     Dates: start: 20171001, end: 20180801
  5. URSODIOL. [Concomitant]
     Active Substance: URSODIOL
     Dates: start: 20150901, end: 20180801
  6. AZITHROMYCIN ANHYDROUS. [Suspect]
     Active Substance: AZITHROMYCIN ANHYDROUS
     Indication: CYSTIC FIBROSIS
     Dosage: ?          OTHER FREQUENCY:3 TIMES A WEEK;?
     Route: 048
     Dates: start: 20150301, end: 20180701
  7. HEPARIN 100 UNITS/ML 5ML SUBCUTANEOUS [Concomitant]
     Dates: start: 20150701, end: 20180801
  8. PROAIR HFA 90 MCG INHALER [Concomitant]
     Dates: start: 20150207, end: 20180801
  9. TOBRAMYCIN INHALATION [Concomitant]
     Dates: start: 20150301, end: 20180801
  10. MONTELUKAST [Concomitant]
     Active Substance: MONTELUKAST SODIUM
     Dates: start: 20160801, end: 20180801
  11. ZENPEP [Concomitant]
     Active Substance: PANCRELIPASE AMYLASE\PANCRELIPASE LIPASE\PANCRELIPASE PROTEASE
     Dates: start: 20150301, end: 20180801
  12. LANSOPRAZOLE. [Concomitant]
     Active Substance: LANSOPRAZOLE
     Dates: start: 20150301, end: 20180801
  13. LORATADINE. [Concomitant]
     Active Substance: LORATADINE
     Dates: start: 20150301, end: 20180801
  14. FLUCONAZOLE. [Concomitant]
     Active Substance: FLUCONAZOLE
     Dates: start: 20180101, end: 20180801
  15. MEGESTROL [Concomitant]
     Active Substance: MEGESTROL
     Dates: start: 20150101, end: 20180801
  16. BREO ELLIPTA 200?25MCH INHALATION [Concomitant]
     Dates: start: 20180301, end: 20180801
  17. PULMOZYME [Concomitant]
     Active Substance: DORNASE ALFA
     Dates: start: 20150301, end: 20180801

REACTIONS (1)
  - Death [None]
